FAERS Safety Report 12632448 (Version 2)
Quarter: 2016Q3

REPORT INFORMATION
  Report Type: Spontaneous
  Country: US (occurrence: US)
  Receive Date: 20160808
  Receipt Date: 20160808
  Transmission Date: 20161109
  Serious: No
  Sender: FDA-Public Use
  Company Number: US-BEH-2016062940

PATIENT
  Sex: Female
  Weight: 73 kg

DRUGS (29)
  1. ACARBOSE. [Concomitant]
     Active Substance: ACARBOSE
  2. VENTOLIN [Concomitant]
     Active Substance: ALBUTEROL SULFATE
  3. RIZATRIPTAN. [Concomitant]
     Active Substance: RIZATRIPTAN
  4. DIAZEPAM. [Concomitant]
     Active Substance: DIAZEPAM
  5. ACETAMINOPHEN. [Concomitant]
     Active Substance: ACETAMINOPHEN
  6. DIPHENHYDRAMINE. [Concomitant]
     Active Substance: DIPHENHYDRAMINE
  7. IPRATROPIUM-ALBUTEROL [Concomitant]
     Active Substance: ALBUTEROL\IPRATROPIUM
  8. VITAMIN C [Concomitant]
     Active Substance: ASCORBIC ACID
  9. ACIPHEX [Concomitant]
     Active Substance: RABEPRAZOLE SODIUM
  10. EPIPEN [Concomitant]
     Active Substance: EPINEPHRINE
  11. NORCO [Concomitant]
     Active Substance: ACETAMINOPHEN\HYDROCODONE BITARTRATE
  12. LIDOCAINE. [Concomitant]
     Active Substance: LIDOCAINE
  13. RABEPRAZOLE [Concomitant]
     Active Substance: RABEPRAZOLE
  14. ZYRTEC [Concomitant]
     Active Substance: CETIRIZINE HYDROCHLORIDE
  15. ALBUTEROL SULFATE. [Concomitant]
     Active Substance: ALBUTEROL SULFATE
  16. DESONIDE. [Concomitant]
     Active Substance: DESONIDE
  17. QVAR [Concomitant]
     Active Substance: BECLOMETHASONE DIPROPIONATE
  18. CLOBETASOL [Concomitant]
     Active Substance: CLOBETASOL
  19. ONDANSETRON [Concomitant]
     Active Substance: ONDANSETRON
  20. SPIRIVA [Concomitant]
     Active Substance: TIOTROPIUM BROMIDE MONOHYDRATE
  21. FUROSEMIDE. [Concomitant]
     Active Substance: FUROSEMIDE
  22. MIRENA [Concomitant]
     Active Substance: LEVONORGESTREL
  23. VITAMIN D3 [Concomitant]
     Active Substance: CHOLECALCIFEROL
  24. CALCIUM [Concomitant]
     Active Substance: CALCIUM
  25. HIZENTRA [Suspect]
     Active Substance: HUMAN IMMUNOGLOBULIN G
     Indication: HYPOGAMMAGLOBULINAEMIA
     Route: 058
  26. KETOCONAZOLE. [Concomitant]
     Active Substance: KETOCONAZOLE
  27. ADVAIR HFA [Concomitant]
     Active Substance: FLUTICASONE PROPIONATE\SALMETEROL XINAFOATE
  28. BENZONATATE. [Concomitant]
     Active Substance: BENZONATATE
  29. VALACYCLOVIR [Concomitant]
     Active Substance: VALACYCLOVIR HYDROCHLORIDE

REACTIONS (1)
  - Migraine [Unknown]
